FAERS Safety Report 7369468-5 (Version None)
Quarter: 2011Q1

REPORT INFORMATION
  Report Type: 
  Country: None (occurrence: None)
  Receive Date: 20110323
  Receipt Date: 20110308
  Transmission Date: 20110831
  Serious: Yes (Other)
  Sender: FDA-Public Use
  Company Number: PHHY2011US18391

PATIENT
  Age: 74 Year
  Sex: Male

DRUGS (1)
  1. ZOLEDRONIC ACID [Suspect]
     Indication: MULTIPLE MYELOMA
     Dosage: UNK

REACTIONS (10)
  - FACIAL PARESIS [None]
  - TINNITUS [None]
  - ERYTHEMA [None]
  - DEAFNESS UNILATERAL [None]
  - OSTEOMYELITIS [None]
  - VERTIGO [None]
  - BONE EROSION [None]
  - NASAL DISCOMFORT [None]
  - EAR PAIN [None]
  - HEADACHE [None]
